FAERS Safety Report 24212902 (Version 3)
Quarter: 2024Q4

REPORT INFORMATION
  Report Type: Spontaneous
  Country: CH (occurrence: CH)
  Receive Date: 20240815
  Receipt Date: 20241115
  Transmission Date: 20250115
  Serious: Yes (Hospitalization, Other)
  Sender: JAZZ
  Company Number: CH-PHARMAMAR-2024PM000364

PATIENT
  Age: 64 Year
  Sex: Male

DRUGS (2)
  1. ZEPZELCA [Suspect]
     Active Substance: LURBINECTEDIN
     Indication: Small cell lung cancer
     Dosage: 3.2 MILLIGRAM/SQ. METER
     Route: 042
     Dates: start: 20240126
  2. ZEPZELCA [Suspect]
     Active Substance: LURBINECTEDIN
     Dosage: 1.6 MILLIGRAM/SQ. METER
     Route: 042
     Dates: start: 20240223

REACTIONS (2)
  - Haematotoxicity [Recovered/Resolved]
  - Off label use [Unknown]

NARRATIVE: CASE EVENT DATE: 20240131
